FAERS Safety Report 9333797 (Version 1)
Quarter: 2013Q2

REPORT INFORMATION
  Report Type: Spontaneous
  Country: DE (occurrence: None)
  Receive Date: 20130604
  Receipt Date: 20130604
  Transmission Date: 20140414
  Serious: Yes (Other)
  Sender: FDA-Public Use
  Company Number: AUR-APL-2013-04587

PATIENT
  Age: 17 Year
  Sex: Male

DRUGS (4)
  1. METFORMIN (METFORMIN) [Suspect]
     Indication: WEIGHT INCREASED
     Dosage: 1700 MG (850 MG, 2 IN 1 DO, UNKNOWN
  2. METHYLPHENIDATE [Suspect]
     Indication: WEIGHT INCREASED
  3. TESTOSTERONE (TESTOSTERONE) [Concomitant]
  4. L-THYROXIN (LEVOTHYROXINE SODIUM) [Concomitant]

REACTIONS (6)
  - Hypopituitarism [None]
  - Hypertriglyceridaemia [None]
  - Weight increased [None]
  - Decreased activity [None]
  - Grand mal convulsion [None]
  - Gastrointestinal disorder [None]
